FAERS Safety Report 8831453 (Version 2)
Quarter: 2014Q3

REPORT INFORMATION
  Report Type: Report from Study
  Country: US (occurrence: US)
  Receive Date: 20121009
  Receipt Date: 20140910
  Transmission Date: 20150326
  Serious: Yes (Other)
  Sender: FDA-Public Use
  Company Number: US-ROCHE-1131122

PATIENT
  Sex: Female
  Weight: 94.89 kg

DRUGS (10)
  1. LORTAB [Concomitant]
     Active Substance: ACETAMINOPHEN\HYDROCODONE BITARTRATE
     Route: 065
  2. PRINIVIL [Concomitant]
     Active Substance: LISINOPRIL
  3. OS-CAL [Concomitant]
  4. VIOXX [Concomitant]
     Active Substance: ROFECOXIB
     Route: 048
  5. AMBIEN [Concomitant]
     Active Substance: ZOLPIDEM TARTRATE
     Route: 065
  6. FUROSEMIDE. [Concomitant]
     Active Substance: FUROSEMIDE
  7. RITUXAN [Suspect]
     Active Substance: RITUXIMAB
     Indication: LYMPHOMA
     Dosage: SECOND COURSE WITH 4 DOSES: 21/JAN/2000, 28/JAN/2000 AND 14/FEB/2000.
     Route: 042
     Dates: start: 20000114
  8. ATENOLOL. [Concomitant]
     Active Substance: ATENOLOL
  9. RITUXAN [Suspect]
     Active Substance: RITUXIMAB
     Indication: B-CELL LYMPHOMA
     Dosage: FIRST COURSE WITH 4 DOSES: 26/OCT, 02/NOV AND 09/NOV/1999.
     Route: 042
     Dates: start: 19991019
  10. QUININE SULFATE. [Concomitant]
     Active Substance: QUININE SULFATE

REACTIONS (16)
  - Radiculopathy [Unknown]
  - Salivary gland neoplasm [Unknown]
  - Chills [Unknown]
  - Hepatitis C [Unknown]
  - Arthritis [Unknown]
  - Arthralgia [Unknown]
  - Cellulitis [Unknown]
  - Prothrombin time prolonged [Unknown]
  - Nausea [Unknown]
  - Vomiting [Unknown]
  - Fatigue [Unknown]
  - Night sweats [Unknown]
  - Gastrooesophageal reflux disease [Unknown]
  - Insomnia [Unknown]
  - Tinnitus [Unknown]
  - Hypertension [Unknown]
